FAERS Safety Report 8360414-4 (Version None)
Quarter: 2012Q2

REPORT INFORMATION
  Report Type: 
  Country: None (occurrence: None)
  Receive Date: 20120515
  Receipt Date: 20120509
  Transmission Date: 20120825
  Serious: Yes (Hospitalization)
  Sender: FDA-Public Use
  Company Number: TH-PFIZER INC-2012112666

PATIENT
  Age: 80 Year
  Sex: Female

DRUGS (1)
  1. TYGACIL [Suspect]
     Indication: PSEUDOMEMBRANOUS COLITIS
     Dosage: 50 MG, 2X/DAY
     Route: 042
     Dates: start: 20120508

REACTIONS (1)
  - INJECTION SITE ERYTHEMA [None]
